FAERS Safety Report 19509642 (Version 1)
Quarter: 2021Q3

REPORT INFORMATION
  Report Type: Spontaneous
  Country: DE (occurrence: DE)
  Receive Date: 20210708
  Receipt Date: 20210708
  Transmission Date: 20211014
  Serious: Yes (Life-Threatening, Hospitalization)
  Sender: FDA-Public Use
  Company Number: DE-PURDUE-USA-2021-0273940

PATIENT
  Age: 84 Year
  Sex: Female

DRUGS (12)
  1. APIXABAN [Concomitant]
     Active Substance: APIXABAN
     Dosage: 2.5 MG, Q12H [2.5 MG, 1?0?1?0]
  2. METOPROLOL. [Concomitant]
     Active Substance: METOPROLOL
     Dosage: 47.5 MG, Q12H [47.5 MG, 1?0?1?0]
  3. KALIUM                             /00031401/ [Concomitant]
     Active Substance: POTASSIUM CHLORIDE
     Dosage: NACH KALIUMWERT, BRAUSETABLETTEN
  4. NATRIUMPICOSULFAT [Concomitant]
     Active Substance: SODIUM PICOSULFATE
     Dosage: 12 DROP, DAILY [[0?0?12?0, TROPFEN]
  5. BUDESONIDE;FORMOTEROL FUMARATE;GLYCOPYRRONIUM [Concomitant]
     Active Substance: BUDESONIDE\FORMOTEROL\GLYCOPYRRONIUM
     Dosage: 160/4.5 MCG, 2?0?2?0, DOSIERAEROSOL
     Route: 055
  6. TIOTROPIUM BROMIDE [Concomitant]
     Active Substance: TIOTROPIUM BROMIDE
     Dosage: 2.5 MCG, 2?0?0?0, DOSIERAEROSOL
     Route: 055
  7. PANTOPRAZOL                        /01263201/ [Concomitant]
     Active Substance: PANTOPRAZOLE
     Dosage: 40 MG, DAILY [40 MG, 1?0?0?0]
  8. MORPHIN                            /00036302/ [Suspect]
     Active Substance: MORPHINE SULFATE
     Indication: PRODUCT USED FOR UNKNOWN INDICATION
     Dosage: 4 DROP, [4 GTT BEI BEDARF BIS ZU 4XTGL, TROPFEN]
     Route: 065
  9. MST (MORPHINE SULFATE) [Suspect]
     Active Substance: MORPHINE SULFATE
     Indication: PRODUCT USED FOR UNKNOWN INDICATION
     Dosage: 10 MG, Q12H [10 MG/ALLE 12 H, 1?0?1?0]
     Route: 065
  10. TORASEMID [Suspect]
     Active Substance: TORSEMIDE
     Indication: PRODUCT USED FOR UNKNOWN INDICATION
     Dosage: 20 MG, DAILY [10 MG, 1?1?0?0]
     Route: 065
  11. MORPHIN                            /00036302/ [Suspect]
     Active Substance: MORPHINE SULFATE
     Dosage: 5 MG, EINMALIG AM 08122020
     Route: 042
     Dates: start: 202012, end: 20201208
  12. METAMIZOL                          /06276701/ [Concomitant]
     Active Substance: METAMIZOLE
     Dosage: BEI BEDARF BIS ZU 3X, TROPFEN

REACTIONS (2)
  - Product prescribing error [Unknown]
  - Dyspnoea [Unknown]

NARRATIVE: CASE EVENT DATE: 20201203
